FAERS Safety Report 6335163-4 (Version None)
Quarter: 2009Q3

REPORT INFORMATION
  Report Type: 
  Country: None (occurrence: None)
  Receive Date: 20090826
  Receipt Date: 20090812
  Transmission Date: 20100115
  Serious: Yes (Death, Hospitalization)
  Sender: FDA-Public Use
  Company Number: POMP-1000695

PATIENT
  Age: 25 Month
  Sex: Female

DRUGS (1)
  1. MYOZYME [Suspect]
     Indication: GLYCOGEN STORAGE DISEASE TYPE II
     Dosage: 20 MG/KG, Q2W, INTRAVENOUS
     Route: 042

REACTIONS (8)
  - ASPIRATION [None]
  - CANDIDIASIS [None]
  - CARDIOMYOPATHY [None]
  - FLUID RETENTION [None]
  - GASTROOESOPHAGEAL REFLUX DISEASE [None]
  - MOTOR DYSFUNCTION [None]
  - RESPIRATORY FAILURE [None]
  - VOMITING [None]
